FAERS Safety Report 9348586 (Version 1)
Quarter: 2013Q2

REPORT INFORMATION
  Report Type: Spontaneous
  Country: US (occurrence: US)
  Receive Date: 20130614
  Receipt Date: 20130614
  Transmission Date: 20140414
  Serious: No
  Sender: FDA-Public Use
  Company Number: US-BAYER-2013-072730

PATIENT
  Age: 28 Year
  Sex: Male

DRUGS (1)
  1. MAGNEVIST [Suspect]
     Indication: NUCLEAR MAGNETIC RESONANCE IMAGING
     Dosage: 13 ML, (15ML SINGLE DOSE VIALS)
     Dates: start: 20130416, end: 20130416

REACTIONS (1)
  - Urticaria [Recovered/Resolved]
